FAERS Safety Report 7775408-7 (Version None)
Quarter: 2011Q3

REPORT INFORMATION
  Report Type: 
  Country: None (occurrence: None)
  Receive Date: 20110923
  Receipt Date: 20110912
  Transmission Date: 20111222
  Serious: Yes (Hospitalization)
  Sender: FDA-Public Use
  Company Number: PHHY2011FR81086

PATIENT
  Sex: Female

DRUGS (2)
  1. PRAVIGARD PAC (COPACKAGED) [Suspect]
     Dosage: UNK UKN, UNK
     Route: 048
     Dates: start: 20110801, end: 20110801
  2. VALSARTAN  AND HYDROCHLOROTHIAZIDE [Suspect]
     Indication: HYPERTENSION
     Dosage: UNK UKN, UNK
     Route: 048
     Dates: end: 20110801

REACTIONS (6)
  - DECREASED APPETITE [None]
  - FALL [None]
  - VERTIGO [None]
  - ORTHOSTATIC HYPOTENSION [None]
  - AUTONOMIC NERVOUS SYSTEM IMBALANCE [None]
  - INJURY [None]
